FAERS Safety Report 5073333-6 (Version None)
Quarter: 2006Q3

REPORT INFORMATION
  Report Type: 
  Country: None (occurrence: None)
  Receive Date: 20060802
  Receipt Date: 20060720
  Transmission Date: 20061208
  Serious: Yes (Other)
  Sender: FDA-Public Use
  Company Number: 2006090383

PATIENT
  Age: 63 Year
  Sex: Female
  Weight: 98.8842 kg

DRUGS (1)
  1. NEURONTIN [Suspect]
     Indication: CONVULSION
     Dosage: 1200 MG (600 MG, 2 IN 1 D), ORAL
     Route: 048

REACTIONS (1)
  - DECREASED ACTIVITY [None]
